FAERS Safety Report 4887052-X (Version None)
Quarter: 2006Q1

REPORT INFORMATION
  Report Type: 
  Country: None (occurrence: None)
  Receive Date: 20060118
  Receipt Date: 20060113
  Transmission Date: 20060701
  Serious: Yes (Hospitalization)
  Sender: FDA-Public Use
  Company Number: TAP2005Q02259

PATIENT
  Age: 84 Year
  Sex: Female

DRUGS (7)
  1. PREVACID [Suspect]
     Indication: GASTROOESOPHAGEAL REFLUX DISEASE
     Dosage: 15 MG, 1 IN 1 D, PER ORAL
     Route: 048
     Dates: start: 20030101, end: 20051201
  2. PREDNISONE [Concomitant]
  3. PLAVIX [Concomitant]
  4. ZOCOR [Concomitant]
  5. FOLIC ACID [Concomitant]
  6. LOPRESSOR [Concomitant]
  7. NEURONTIN [Concomitant]

REACTIONS (1)
  - CLOSTRIDIUM COLITIS [None]
